FAERS Safety Report 5783420-2 (Version None)
Quarter: 2008Q2

REPORT INFORMATION
  Report Type: 
  Country: None (occurrence: None)
  Receive Date: 20080605
  Receipt Date: 20080414
  Transmission Date: 20081010
  Serious: No
  Sender: FDA-Public Use
  Company Number: A0715765A

PATIENT

DRUGS (1)
  1. ALLI [Suspect]
     Indication: DRUG USE FOR UNKNOWN INDICATION

REACTIONS (7)
  - BRONCHITIS [None]
  - CHANGE OF BOWEL HABIT [None]
  - HEAD DISCOMFORT [None]
  - MIGRAINE [None]
  - NASAL DISCOMFORT [None]
  - RHINORRHOEA [None]
  - SINUSITIS [None]
